FAERS Safety Report 22006011 (Version 2)
Quarter: 2023Q1

REPORT INFORMATION
  Report Type: Spontaneous
  Country: CN (occurrence: CN)
  Receive Date: 20230217
  Receipt Date: 20230222
  Transmission Date: 20230417
  Serious: Yes (Other)
  Sender: FDA-Public Use
  Company Number: CN-MLMSERVICE-20230207-4090728-1

PATIENT
  Age: 49 Year
  Sex: Male
  Weight: 44.5 kg

DRUGS (3)
  1. METHYLPREDNISOLONE SODIUM SUCCINATE [Suspect]
     Active Substance: METHYLPREDNISOLONE SODIUM SUCCINATE
     Indication: Immune-mediated cystitis
     Dosage: 60 MG (BODY WEIGHT 44.5 KG, EQUIVALENT TO 1.7 MG/KG/DAY OF PREDNISONE)
     Route: 042
     Dates: start: 20220510
  2. METHYLPREDNISOLONE SODIUM SUCCINATE [Suspect]
     Active Substance: METHYLPREDNISOLONE SODIUM SUCCINATE
     Indication: Ureteritis
     Dosage: 40 MG
     Route: 042
     Dates: start: 20220520
  3. METHYLPREDNISOLONE SODIUM SUCCINATE [Suspect]
     Active Substance: METHYLPREDNISOLONE SODIUM SUCCINATE
     Dosage: REDUCED THE DOSE
     Route: 042
     Dates: end: 20220825

REACTIONS (2)
  - Steroid diabetes [Unknown]
  - Gastrointestinal fungal infection [Unknown]

NARRATIVE: CASE EVENT DATE: 20220101
